FAERS Safety Report 10073651 (Version 2)
Quarter: 2014Q2

REPORT INFORMATION
  Report Type: Spontaneous
  Country: US (occurrence: RO)
  Receive Date: 20140411
  Receipt Date: 20140422
  Transmission Date: 20141212
  Serious: Yes (Death)
  Sender: FDA-Public Use
  Company Number: RO-FRI-1000066295

PATIENT
  Sex: Male

DRUGS (1)
  1. CEFTAROLINE FOSAMIL [Suspect]
     Indication: PNEUMONIA
     Dosage: 1200 MG
     Route: 042

REACTIONS (1)
  - Acute myocardial infarction [Fatal]
